FAERS Safety Report 7738174-7 (Version None)
Quarter: 2011Q3

REPORT INFORMATION
  Report Type: 
  Country: None (occurrence: None)
  Receive Date: 20110908
  Receipt Date: 20110905
  Transmission Date: 20111222
  Serious: Yes (Death)
  Sender: FDA-Public Use
  Company Number: VE-PFIZER INC-2011203049

PATIENT
  Age: 76 Year
  Sex: Female

DRUGS (3)
  1. DIGOXIN [Concomitant]
     Indication: CARDIAC DISORDER
     Dosage: UNK
     Route: 048
     Dates: start: 20090101, end: 20100401
  2. CADUET [Suspect]
     Indication: HYPERTENSION
     Dosage: 5 MG/20 MG, 1X/DAY
     Route: 048
     Dates: start: 20090401, end: 20100201
  3. APROVEL [Concomitant]
     Indication: CARDIAC DISORDER
     Dosage: UNK
     Route: 048
     Dates: start: 20090101, end: 20100401

REACTIONS (1)
  - COLON CANCER [None]
